FAERS Safety Report 8878072 (Version 1)
Quarter: 2012Q4

REPORT INFORMATION
  Report Type: Spontaneous
  Country: AU (occurrence: None)
  Receive Date: 20121026
  Receipt Date: 20121026
  Transmission Date: 20130627
  Serious: Yes (Other)
  Sender: FDA-Public Use
  Company Number: DSA_60383_2012

PATIENT
  Age: 60 Year
  Sex: Male

DRUGS (7)
  1. CARDIZEM [Suspect]
     Indication: ANGINA PECTORIS
     Dates: start: 2012, end: 2012
  2. CARDIZEM [Suspect]
     Indication: ANGINA PECTORIS
     Dates: start: 2012, end: 2012
  3. CARDIZEM [Suspect]
     Indication: ANGINA PECTORIS
     Dates: start: 2012
  4. CARDIZEM [Suspect]
     Indication: ANGINA PECTORIS
     Dates: start: 2012
  5. COPLAVIX (UNKNOWN) [Concomitant]
  6. LIPITOR (UNKNOWN) [Concomitant]
  7. OMEPRAZOLE (UNKNOWN) [Concomitant]

REACTIONS (5)
  - Angina pectoris [None]
  - Drug ineffective [None]
  - Skin disorder [None]
  - Asthenia [None]
  - Product formulation issue [None]
